FAERS Safety Report 16359605 (Version 1)
Quarter: 2019Q2

REPORT INFORMATION
  Report Type: Report from Study
  Country: CA (occurrence: CA)
  Receive Date: 20190528
  Receipt Date: 20190528
  Transmission Date: 20190711
  Serious: No
  Sender: FDA-Public Use
  Company Number: CA-ROCHE-2117578

PATIENT
  Age: 40 Year
  Sex: Female

DRUGS (5)
  1. DIPHENHYDRAMINE. [Concomitant]
     Active Substance: DIPHENHYDRAMINE
     Dosage: 50 MG PO/IV 30-60 MIN PRIOR TO EACH INFUSION
     Route: 065
     Dates: start: 20180426, end: 20180426
  2. METHYLPREDNISOLONE. [Concomitant]
     Active Substance: METHYLPREDNISOLONE
     Dosage: 100 MG IV APPROX 30 MIN PRIOR TO EACH INFUSION
     Route: 042
     Dates: start: 20180426, end: 20180426
  3. VITAMIN C [Concomitant]
     Active Substance: ASCORBIC ACID
  4. ACETAMINOPHEN. [Concomitant]
     Active Substance: ACETAMINOPHEN
     Dosage: 1000 MG PO 30-60 MIN PRIOR TO EACH INFUSION
     Route: 048
     Dates: start: 20180426, end: 20180426
  5. OCREVUS [Suspect]
     Active Substance: OCRELIZUMAB
     Indication: RELAPSING-REMITTING MULTIPLE SCLEROSIS
     Dosage: 300 MG IV DAY 0 AND DAY 14, 600 MG IV Q 6 MONTHS
     Route: 042
     Dates: start: 20180426

REACTIONS (8)
  - Lymphocyte count decreased [Unknown]
  - Headache [Recovered/Resolved]
  - Infusion related reaction [Recovering/Resolving]
  - Diarrhoea [Recovered/Resolved]
  - Hypoaesthesia [Recovering/Resolving]
  - Nasopharyngitis [Recovered/Resolved]
  - Abdominal distension [Recovering/Resolving]
  - Hot flush [Recovering/Resolving]

NARRATIVE: CASE EVENT DATE: 20180426
